FAERS Safety Report 25894077 (Version 1)
Quarter: 2025Q4

REPORT INFORMATION
  Report Type: Report from Study
  Country: ZA (occurrence: ZA)
  Receive Date: 20251008
  Receipt Date: 20251008
  Transmission Date: 20260118
  Serious: Yes (Hospitalization)
  Sender: ABBVIE
  Company Number: ZA-ABBVIE-6493580

PATIENT
  Sex: Male

DRUGS (1)
  1. BOTOX [Suspect]
     Active Substance: ONABOTULINUMTOXINA
     Indication: Muscle spasticity
     Dosage: TIME INTERVAL: AS NECESSARY: DOSE: 200 UNITS, ?FORM STRENGTH: 200 UNITS ?FREQUENCY: EVERY 1 MONTH
     Route: 065
     Dates: start: 20240214, end: 20240214

REACTIONS (1)
  - Surgery [Unknown]
